FAERS Safety Report 24584755 (Version 3)
Quarter: 2025Q1

REPORT INFORMATION
  Report Type: Spontaneous
  Country: CA (occurrence: CA)
  Receive Date: 20241106
  Receipt Date: 20250102
  Transmission Date: 20250409
  Serious: Yes (Death)
  Sender: PHARMACOSMOS A/S
  Company Number: None

PATIENT
  Age: 84 Year
  Sex: Female
  Weight: 58.9 kg

DRUGS (8)
  1. MONOFERRIC [Suspect]
     Active Substance: FERRIC DERISOMALTOSE
     Indication: Chronic kidney disease
     Dates: start: 20240524, end: 20240524
  2. MONOFERRIC [Suspect]
     Active Substance: FERRIC DERISOMALTOSE
     Indication: Chronic kidney disease
     Dates: start: 20240524, end: 20240524
  3. MONOFERRIC [Suspect]
     Active Substance: FERRIC DERISOMALTOSE
     Indication: Chronic kidney disease
     Dates: start: 20240524, end: 20240524
  4. MONOFERRIC [Suspect]
     Active Substance: FERRIC DERISOMALTOSE
     Indication: Chronic kidney disease
     Dates: start: 20240524, end: 20240524
  5. MONOFERRIC [Suspect]
     Active Substance: FERRIC DERISOMALTOSE
     Indication: Anaemia
     Dates: start: 20240524, end: 20240524
  6. MONOFERRIC [Suspect]
     Active Substance: FERRIC DERISOMALTOSE
     Indication: Anaemia
     Dates: start: 20240524, end: 20240524
  7. MONOFERRIC [Suspect]
     Active Substance: FERRIC DERISOMALTOSE
     Indication: Anaemia
     Dates: start: 20240524, end: 20240524
  8. MONOFERRIC [Suspect]
     Active Substance: FERRIC DERISOMALTOSE
     Indication: Anaemia
     Dates: start: 20240524, end: 20240524

REACTIONS (6)
  - Hypotension [Fatal]
  - Unresponsive to stimuli [Fatal]
  - Disease progression [Fatal]
  - Abdominal discomfort [Fatal]
  - Loss of consciousness [Fatal]
  - Malaise [Fatal]

NARRATIVE: CASE EVENT DATE: 20240524
